FAERS Safety Report 6884204-4 (Version None)
Quarter: 2010Q3

REPORT INFORMATION
  Report Type: 
  Country: None (occurrence: None)
  Receive Date: 20100729
  Receipt Date: 20070809
  Transmission Date: 20110219
  Serious: Yes (Other)
  Sender: FDA-Public Use
  Company Number: US-PFIZER INC-2007048157

PATIENT
  Sex: Female
  Weight: 54.545 kg

DRUGS (4)
  1. CELEBREX [Suspect]
     Indication: ARTHRITIS
     Dates: start: 20011211
  2. COZAAR [Interacting]
  3. VITAMINS [Concomitant]
  4. THYROID TAB [Concomitant]

REACTIONS (9)
  - BLISTER [None]
  - BLISTER INFECTED [None]
  - CELLULITIS [None]
  - DRUG INTERACTION [None]
  - GLAUCOMA [None]
  - ORAL PAIN [None]
  - RASH [None]
  - SWELLING FACE [None]
  - URTICARIA [None]
